FAERS Safety Report 8952489 (Version 2)
Quarter: 2013Q1

REPORT INFORMATION
  Report Type: Spontaneous
  Country: US (occurrence: US)
  Receive Date: 20121205
  Receipt Date: 20130218
  Transmission Date: 20140127
  Serious: Yes (Hospitalization)
  Sender: FDA-Public Use
  Company Number: US-BAYER-2012-125581

PATIENT
  Age: 34 Year
  Sex: Female
  Weight: 104.31 kg

DRUGS (8)
  1. YAZ [Suspect]
     Indication: ACNE
  2. YAZ [Suspect]
     Indication: PREMENSTRUAL SYNDROME
  3. YASMIN [Suspect]
     Indication: ACNE
     Dosage: UNK
     Dates: start: 200210, end: 200311
  4. YASMIN [Suspect]
     Indication: PREMENSTRUAL SYNDROME
     Dosage: UNK
     Dates: start: 200505, end: 200508
  5. YASMIN [Suspect]
     Indication: POLYCYSTIC OVARIES
  6. YASMIN [Suspect]
     Indication: MENOMETRORRHAGIA
  7. FLAGYL [Concomitant]
     Dosage: 500 MG, TWICE DAILY FOR 7 DAYS
  8. ADVIL [Concomitant]

REACTIONS (5)
  - Pulmonary embolism [Recovered/Resolved]
  - Deep vein thrombosis [Recovered/Resolved]
  - Injury [Recovered/Resolved]
  - Pain in extremity [Recovered/Resolved]
  - Dyspnoea [Recovered/Resolved]
